FAERS Safety Report 4766335-8 (Version None)
Quarter: 2005Q3

REPORT INFORMATION
  Report Type: 
  Country: None (occurrence: None)
  Receive Date: 20050912
  Receipt Date: 20050831
  Transmission Date: 20060218
  Serious: Yes (Other)
  Sender: FDA-Public Use
  Company Number: PHEH2005US09703

PATIENT
  Sex: Female

DRUGS (4)
  1. CLOZARIL [Suspect]
     Dates: end: 20041220
  2. SERENTIL [Suspect]
     Dates: start: 19860101, end: 19930101
  3. ALUMINUM HYDROXIDE AND MAGNESIUM TRISILICATE [Concomitant]
  4. NITROGLYCERIN [Concomitant]
     Route: 060

REACTIONS (25)
  - ABDOMINAL PAIN UPPER [None]
  - ALOPECIA [None]
  - BALANCE DISORDER [None]
  - BENIGN BREAST NEOPLASM [None]
  - CONSTIPATION [None]
  - COUGH [None]
  - DIARRHOEA [None]
  - DISTURBANCE IN ATTENTION [None]
  - DYSPHAGIA [None]
  - ELECTROCARDIOGRAM ABNORMAL [None]
  - FALL [None]
  - GAIT DISTURBANCE [None]
  - HAEMOPTYSIS [None]
  - HAEMORRHAGE [None]
  - HEAD INJURY [None]
  - INCREASED UPPER AIRWAY SECRETION [None]
  - INSOMNIA [None]
  - MEMORY IMPAIRMENT [None]
  - MUSCLE SPASMS [None]
  - OESOPHAGEAL SPASM [None]
  - PSYCHOMOTOR HYPERACTIVITY [None]
  - RETCHING [None]
  - RHINORRHOEA [None]
  - SURGERY [None]
  - WEIGHT DECREASED [None]
